FAERS Safety Report 9855686 (Version 1)
Quarter: 2014Q1

REPORT INFORMATION
  Report Type: Spontaneous
  Country: US (occurrence: None)
  Receive Date: 20140129
  Receipt Date: 20140129
  Transmission Date: 20141002
  Serious: Yes (Other)
  Sender: FDA-Public Use
  Company Number: None

PATIENT
  Age: 75 Year
  Sex: Female
  Weight: 70.31 kg

DRUGS (2)
  1. REVLIMID [Suspect]
     Indication: PLASMA CELL MYELOMA
     Route: 048
     Dates: start: 20131121, end: 20131130
  2. REVLIMID [Suspect]
     Indication: LYMPHOMA
     Route: 048
     Dates: start: 20131121, end: 20131130

REACTIONS (1)
  - Confusional state [None]
